FAERS Safety Report 9802280 (Version 1)
Quarter: 2014Q1

REPORT INFORMATION
  Report Type: Spontaneous
  Country: US (occurrence: US)
  Receive Date: 20140107
  Receipt Date: 20140107
  Transmission Date: 20141002
  Serious: Yes (Hospitalization)
  Sender: FDA-Public Use
  Company Number: US-ASTRAZENECA-2013SE94443

PATIENT
  Age: 53 Year
  Sex: Male
  Weight: 114.3 kg

DRUGS (8)
  1. PRILOSEC [Suspect]
     Indication: NERVE INJURY
     Route: 048
  2. LYRICA [Suspect]
     Indication: DIABETIC NEUROPATHY
     Route: 065
  3. LYRICA [Suspect]
     Indication: PAIN IN EXTREMITY
     Route: 065
  4. LYRICA [Suspect]
     Indication: BACK PAIN
     Route: 065
  5. CYMBALTA [Suspect]
     Indication: DIABETIC NEUROPATHY
     Route: 065
     Dates: end: 201305
  6. CYMBALTA [Suspect]
     Indication: BACK PAIN
     Route: 065
     Dates: end: 201305
  7. CYMBALTA [Suspect]
     Indication: PAIN IN EXTREMITY
     Route: 065
     Dates: end: 201305
  8. INSULIN [Concomitant]

REACTIONS (13)
  - Blood glucose increased [Unknown]
  - Haematemesis [Unknown]
  - Loss of consciousness [Unknown]
  - Fall [Unknown]
  - Eructation [Unknown]
  - Dizziness [Unknown]
  - Pain in extremity [Not Recovered/Not Resolved]
  - Feeling abnormal [Unknown]
  - Insomnia [Not Recovered/Not Resolved]
  - Malaise [Unknown]
  - Pyrexia [Unknown]
  - Constipation [Recovering/Resolving]
  - Abdominal discomfort [Unknown]
